FAERS Safety Report 7722685-4 (Version None)
Quarter: 2011Q3

REPORT INFORMATION
  Report Type: 
  Country: None (occurrence: None)
  Receive Date: 20110831
  Receipt Date: 20110822
  Transmission Date: 20111222
  Serious: Yes (Hospitalization)
  Sender: FDA-Public Use
  Company Number: US-ASTRAZENECA-2011SE31746

PATIENT
  Age: 33 Year
  Sex: Female

DRUGS (1)
  1. SEROQUEL XR [Suspect]
     Route: 048

REACTIONS (4)
  - MALAISE [None]
  - FEELING ABNORMAL [None]
  - POST PROCEDURAL INFECTION [None]
  - DRUG DOSE OMISSION [None]
